FAERS Safety Report 21556803 (Version 1)
Quarter: 2022Q4

REPORT INFORMATION
  Report Type: Spontaneous
  Country: US (occurrence: US)
  Receive Date: 20221104
  Receipt Date: 20221104
  Transmission Date: 20230112
  Serious: Yes (Other)
  Sender: FDA-Public Use
  Company Number: US-ASPEN-GLO2021US004292

PATIENT
  Age: 5 Month
  Sex: Female

DRUGS (3)
  1. LIDOCAINE\PRILOCAINE [Suspect]
     Active Substance: LIDOCAINE\PRILOCAINE
     Indication: Anaesthesia
     Dosage: UNK
     Route: 061
  2. PROPOFOL [Suspect]
     Active Substance: PROPOFOL
     Indication: Seizure
     Dosage: UNK
     Route: 065
  3. ROCURONIUM [Concomitant]
     Active Substance: ROCURONIUM BROMIDE
     Indication: Seizure
     Dosage: UNK
     Route: 065

REACTIONS (7)
  - Overdose [Unknown]
  - Status epilepticus [Unknown]
  - Toxicity to various agents [Unknown]
  - Mental status changes [Unknown]
  - Respiration abnormal [Unknown]
  - Dyskinesia [Unknown]
  - Methaemoglobinaemia [Unknown]
